FAERS Safety Report 7883270-7 (Version None)
Quarter: 2011Q4

REPORT INFORMATION
  Report Type: 
  Country: None (occurrence: None)
  Receive Date: 20111031
  Receipt Date: 20111006
  Transmission Date: 20120403
  Serious: Yes (Life-Threatening)
  Sender: FDA-Public Use
  Company Number: 54973

PATIENT
  Age: 3 Year

DRUGS (2)
  1. HYLAND'S COLD 'NN COUGH 4 KIDS [Suspect]
     Indication: NASOPHARYNGITIS
  2. IBUPROFEN [Suspect]

REACTIONS (2)
  - HAEMOLYTIC ANAEMIA [None]
  - VIRAL INFECTION [None]
